FAERS Safety Report 23241099 (Version 1)
Quarter: 2023Q4

REPORT INFORMATION
  Report Type: Report from Study
  Country: NL (occurrence: NL)
  Receive Date: 20231129
  Receipt Date: 20231129
  Transmission Date: 20240110
  Serious: Yes (Death, Other)
  Sender: FDA-Public Use
  Company Number: NL-VER-202300089

PATIENT
  Age: 81 Year
  Sex: Male

DRUGS (3)
  1. TRIPTORELIN PAMOATE [Suspect]
     Active Substance: TRIPTORELIN PAMOATE
     Indication: Prostate cancer
     Route: 030
     Dates: start: 20230524, end: 20230524
  2. TRIPTORELIN PAMOATE [Suspect]
     Active Substance: TRIPTORELIN PAMOATE
     Indication: Prostate cancer
     Dosage: ??1.00 X PER 6 MAANDEN
     Route: 030
     Dates: start: 20211119, end: 20211119
  3. TRIPTORELIN PAMOATE [Suspect]
     Active Substance: TRIPTORELIN PAMOATE
     Indication: Prostate cancer
     Dosage: ??1.00 X PER 6 MAANDEN,
     Route: 030
     Dates: start: 20221122, end: 20221122

REACTIONS (1)
  - Death [Fatal]

NARRATIVE: CASE EVENT DATE: 20231002
